FAERS Safety Report 8008098-9 (Version None)
Quarter: 2011Q4

REPORT INFORMATION
  Report Type: 
  Country: None (occurrence: None)
  Receive Date: 20111227
  Receipt Date: 20111221
  Transmission Date: 20120403
  Serious: Yes (Other)
  Sender: FDA-Public Use
  Company Number: PHHY2011CA72907

PATIENT
  Sex: Female

DRUGS (2)
  1. LYRICA [Concomitant]
     Dosage: UNK UKN, UNK
  2. GILENYA [Suspect]
     Indication: RELAPSING-REMITTING MULTIPLE SCLEROSIS
     Dosage: 0.5 MG, QD
     Route: 048
     Dates: start: 20110617

REACTIONS (7)
  - NEURALGIA [None]
  - GENERAL PHYSICAL HEALTH DETERIORATION [None]
  - HEMIPARESIS [None]
  - GAIT DISTURBANCE [None]
  - PAIN IN EXTREMITY [None]
  - HYPOAESTHESIA [None]
  - PAIN [None]
